FAERS Safety Report 7631485-5 (Version None)
Quarter: 2011Q3

REPORT INFORMATION
  Report Type: 
  Country: None (occurrence: None)
  Receive Date: 20110701
  Receipt Date: 20101129
  Transmission Date: 20111222
  Serious: Yes (Other)
  Sender: FDA-Public Use
  Company Number: 7029927

PATIENT
  Age: 43 Year
  Sex: Male

DRUGS (9)
  1. ALPRAZOLAM [Concomitant]
  2. REBIF [Suspect]
     Indication: MULTIPLE SCLEROSIS
     Dosage: 44 MCG, 3 IN 1 WK, SUBCUTANEOUS
     Route: 059
     Dates: start: 20031203
  3. TIZANIDINE HCL [Concomitant]
  4. LORTAB (VICODIN) [Concomitant]
  5. LORTAB (VICODIN) [Concomitant]
  6. LEXAPRO [Concomitant]
  7. MUSCLE RELAXANT (MUSCLE RELAXANTS) [Concomitant]
  8. FLOMAX [Concomitant]
  9. XANAX [Concomitant]

REACTIONS (4)
  - CONVULSION [None]
  - LOSS OF BLADDER SENSATION [None]
  - INFLUENZA LIKE ILLNESS [None]
  - WHEELCHAIR USER [None]
